FAERS Safety Report 13968642 (Version 2)
Quarter: 2018Q3

REPORT INFORMATION
  Report Type: Spontaneous
  Country: US (occurrence: US)
  Receive Date: 20170914
  Receipt Date: 20180913
  Transmission Date: 20181010
  Serious: No
  Sender: FDA-Public Use
  Company Number: US-ASTELLAS-2017US027642

PATIENT
  Sex: Male

DRUGS (1)
  1. XTANDI [Suspect]
     Active Substance: ENZALUTAMIDE
     Indication: PROSTATE CANCER
     Route: 048

REACTIONS (6)
  - Confusional state [Unknown]
  - Muscle spasms [Unknown]
  - Nausea [Unknown]
  - Hot flush [Recovered/Resolved]
  - Asthenia [Unknown]
  - Fatigue [Unknown]
